FAERS Safety Report 15297705 (Version 1)
Quarter: 2018Q3

REPORT INFORMATION
  Report Type: Spontaneous
  Country: ES (occurrence: ES)
  Receive Date: 20180820
  Receipt Date: 20180820
  Transmission Date: 20181010
  Serious: Yes (Hospitalization)
  Sender: FDA-Public Use
  Company Number: ES-ELI_LILLY_AND_COMPANY-ES201808006730

PATIENT
  Age: 63 Year
  Sex: Male
  Weight: 74 kg

DRUGS (4)
  1. VANCOMICINA                        /00314401/ [Concomitant]
     Indication: PNEUMONIA
     Dosage: 1 G, DAILY
     Route: 042
     Dates: start: 20151130, end: 20151221
  2. FUROSEMIDA                         /00032601/ [Suspect]
     Active Substance: FUROSEMIDE
     Indication: PRODUCT USED FOR UNKNOWN INDICATION
     Dosage: 40 MG, UNKNOWN
     Route: 048
     Dates: start: 20151215, end: 20151220
  3. PRASUGREL HYDROCHLORIDE 10MG [Suspect]
     Active Substance: PRASUGREL HYDROCHLORIDE
     Indication: CARDIOVASCULAR EVENT PROPHYLAXIS
     Dosage: 10 MG, DAILY
     Route: 048
     Dates: start: 20151215, end: 20151221
  4. CEFTRIAXONA                        /00672201/ [Concomitant]
     Indication: PNEUMONIA
     Dosage: 1 G, DAILY
     Route: 042
     Dates: start: 20151123, end: 20151207

REACTIONS (1)
  - Drug reaction with eosinophilia and systemic symptoms [Recovered/Resolved]

NARRATIVE: CASE EVENT DATE: 20151217
